FAERS Safety Report 6187128-3 (Version None)
Quarter: 2009Q2

REPORT INFORMATION
  Report Type: 
  Country: None (occurrence: None)
  Receive Date: 20090512
  Receipt Date: 20090501
  Transmission Date: 20091009
  Serious: Yes (Other)
  Sender: FDA-Public Use
  Company Number: GB-BAYER-200920068GPV

PATIENT
  Age: 15 Year

DRUGS (7)
  1. ALEMTUZUMAB [Suspect]
     Indication: STEM CELL TRANSPLANT
     Dosage: 1 MG/KG
  2. CYCLOPHOSPHAMIDE [Suspect]
     Indication: STEM CELL TRANSPLANT
     Dosage: 200 MG/KG
  3. BUSULPHAN [Suspect]
     Indication: PROPHYLAXIS AGAINST GRAFT VERSUS HOST DISEASE
     Dosage: 16 MG/KG
  4. CO-TRIMOXAZOLE [Concomitant]
     Indication: PROPHYLAXIS
  5. ITRACONAZOLE [Concomitant]
     Indication: ANTIFUNGAL PROPHYLAXIS
  6. IMMUNE GLOBULIN INTRAVENOUS (HUMAN) [Concomitant]
     Indication: PROPHYLAXIS
  7. ANTIVIRALS NOS [Concomitant]
     Indication: ANTIVIRAL PROPHYLAXIS

REACTIONS (1)
  - HYPOTHYROIDISM [None]
